FAERS Safety Report 23471801 (Version 1)
Quarter: 2024Q1

REPORT INFORMATION
  Report Type: Spontaneous
  Country: US (occurrence: US)
  Receive Date: 20240202
  Receipt Date: 20240202
  Transmission Date: 20240409
  Serious: No
  Sender: FDA-Public Use
  Company Number: US-MYLANLABS-2024M1002429

PATIENT
  Sex: Female
  Weight: 108.86 kg

DRUGS (2)
  1. PREGABALIN [Suspect]
     Active Substance: PREGABALIN
     Indication: Neuralgia
     Dosage: UNK
     Route: 065
     Dates: start: 2021
  2. TIZANIDINE [Concomitant]
     Active Substance: TIZANIDINE
     Dosage: MILLIGRAM
     Route: 065

REACTIONS (3)
  - Gout [Unknown]
  - Joint swelling [Unknown]
  - Arthralgia [Recovered/Resolved]
